FAERS Safety Report 15463958 (Version 2)
Quarter: 2018Q4

REPORT INFORMATION
  Report Type: Spontaneous
  Country: US (occurrence: US)
  Receive Date: 20181004
  Receipt Date: 20181009
  Transmission Date: 20190204
  Serious: Yes (Hospitalization)
  Sender: FDA-Public Use
  Company Number: US-STANDARD HOMEOPATHIC COMPANY-2055118

PATIENT
  Age: 3 Year
  Sex: Female

DRUGS (1)
  1. 4 KIDS COMPLETE COLD AND MUCUS [Suspect]
     Active Substance: HOMEOPATHICS
     Route: 048
     Dates: start: 20180903, end: 20180903

REACTIONS (2)
  - Vomiting [None]
  - Respiratory failure [None]

NARRATIVE: CASE EVENT DATE: 20180904
